FAERS Safety Report 6960468-3 (Version None)
Quarter: 2010Q3

REPORT INFORMATION
  Report Type: 
  Country: None (occurrence: None)
  Receive Date: 20100823
  Receipt Date: 20100630
  Transmission Date: 20110219
  Serious: No
  Sender: FDA-Public Use
  Company Number: 014980

PATIENT
  Sex: Male
  Weight: 79.3 kg

DRUGS (3)
  1. CIMZIA [Suspect]
     Indication: CROHN'S DISEASE
     Dosage: (DOSE SUBCUTANEOUS)
     Route: 058
     Dates: start: 20091201
  2. PARXOETINE [Concomitant]
  3. VITAMIN TAB [Concomitant]

REACTIONS (2)
  - ARTHRALGIA [None]
  - FATIGUE [None]
